FAERS Safety Report 7774561-9 (Version None)
Quarter: 2011Q3

REPORT INFORMATION
  Report Type: 
  Country: None (occurrence: None)
  Receive Date: 20110923
  Receipt Date: 20110912
  Transmission Date: 20111222
  Serious: Yes (Hospitalization)
  Sender: FDA-Public Use
  Company Number: DE-JNJFOC-20110512145

PATIENT
  Age: 6 Decade
  Sex: Male
  Weight: 130 kg

DRUGS (9)
  1. LERCANIDIPINE [Concomitant]
  2. METFORMIN HCL [Concomitant]
  3. NALOXONE [Concomitant]
     Indication: BACK PAIN
  4. METOPROLOL TARTRATE [Concomitant]
  5. PALEXIA RETARD [Suspect]
     Indication: PAIN
     Route: 065
     Dates: start: 20101117, end: 20101122
  6. KARVEA [Concomitant]
  7. HUMALOG [Concomitant]
  8. PALEXIA RETARD [Suspect]
     Indication: BACK PAIN
     Route: 065
     Dates: start: 20101117, end: 20101122
  9. SIMVASTATIN [Concomitant]

REACTIONS (4)
  - GASTRITIS [None]
  - ABDOMINAL DISCOMFORT [None]
  - ABDOMINAL PAIN UPPER [None]
  - CONSTIPATION [None]
